FAERS Safety Report 16640474 (Version 2)
Quarter: 2019Q3

REPORT INFORMATION
  Report Type: Spontaneous
  Country: FR (occurrence: FR)
  Receive Date: 20190729
  Receipt Date: 20190905
  Transmission Date: 20191004
  Serious: Yes (Life-Threatening, Hospitalization)
  Sender: FDA-Public Use
  Company Number: FR-ROCHE-2363280

PATIENT
  Age: 56 Year
  Sex: Female
  Weight: 69 kg

DRUGS (2)
  1. AVASTIN [Suspect]
     Active Substance: BEVACIZUMAB
     Indication: BREAST CANCER METASTATIC
     Route: 042
     Dates: start: 20181218, end: 20190704
  2. PACLITAXEL. [Suspect]
     Active Substance: PACLITAXEL
     Indication: BREAST CANCER METASTATIC
     Route: 042
     Dates: start: 2018, end: 20190704

REACTIONS (2)
  - Pharyngeal fistula [Recovering/Resolving]
  - Radiation necrosis [Recovering/Resolving]

NARRATIVE: CASE EVENT DATE: 201907
